FAERS Safety Report 26200111 (Version 1)
Quarter: 2025Q4

REPORT INFORMATION
  Report Type: Report from Study
  Country: CA (occurrence: CA)
  Receive Date: 20251225
  Receipt Date: 20251225
  Transmission Date: 20260117
  Serious: Yes (Hospitalization)
  Sender: AMARIN PHARMA, INC.
  Company Number: CA-Amarin Pharma  Inc-2025AMR000790

PATIENT
  Age: 71 Year
  Sex: Female

DRUGS (1)
  1. VASCEPA [Suspect]
     Active Substance: ICOSAPENT ETHYL
     Indication: Cardiovascular event prophylaxis
     Dosage: UNKNOWN (2 TIMES A DAY)
     Route: 065
     Dates: start: 20231011

REACTIONS (3)
  - Cardiac operation [Unknown]
  - Procedural pain [Unknown]
  - Skin disorder [Unknown]
